FAERS Safety Report 5771453-1 (Version None)
Quarter: 2008Q2

REPORT INFORMATION
  Report Type: 
  Country: None (occurrence: None)
  Receive Date: 20080611
  Receipt Date: 20080527
  Transmission Date: 20081010
  Serious: Yes (Other)
  Sender: FDA-Public Use
  Company Number: E2020-02871-SPO-GB

PATIENT
  Age: 9 Year
  Sex: Male
  Weight: 87.7 kg

DRUGS (6)
  1. ARICEPT [Suspect]
     Indication: DEMENTIA ALZHEIMER'S TYPE
     Dosage: 5 MG, 1 IN 1 D, ORAL
     Route: 048
     Dates: start: 20080304, end: 20080310
  2. ASPIRIN [Concomitant]
  3. OMEPRAZOLE [Concomitant]
  4. PYRIDOXINE (PYRIDOXINE) [Concomitant]
  5. RIFINAH (RIFINAH) [Concomitant]
  6. SERTRALINE [Concomitant]

REACTIONS (5)
  - ACUTE PSYCHOSIS [None]
  - ANXIETY [None]
  - HALLUCINATION [None]
  - PARANOIA [None]
  - SLEEP DISORDER [None]
